FAERS Safety Report 6726728-6 (Version None)
Quarter: 2010Q2

REPORT INFORMATION
  Report Type: 
  Country: None (occurrence: None)
  Receive Date: 20100514
  Receipt Date: 20100504
  Transmission Date: 20101027
  Serious: Yes (Hospitalization)
  Sender: FDA-Public Use
  Company Number: BR-ROCHE-697439

PATIENT
  Sex: Female
  Weight: 75 kg

DRUGS (13)
  1. TOCILIZUMAB [Suspect]
     Indication: RHEUMATOID ARTHRITIS
     Dosage: DOSE FORM: 8 MG/KG., LAST DOSE PRIOR TO SAE: 30 MARCH 2010.
     Route: 042
     Dates: start: 20060502
  2. TOCILIZUMAB [Suspect]
     Dosage: PREVIOUSLY THE PATIENT WAS ENROLLED IN PROTOCOL WA18063.
     Route: 042
     Dates: start: 20060502
  3. PREDNISONE [Concomitant]
     Dosage: CORTICOSTEROID, FREQUENCY: DAILY
     Route: 048
     Dates: start: 20030621
  4. CARBAMAZEPINE [Concomitant]
  5. METHOTREXATE [Concomitant]
     Route: 048
     Dates: start: 20070227
  6. METHOTREXATE [Concomitant]
     Route: 048
  7. FOLIC ACID [Concomitant]
     Dosage: FREQUENCY REPORTED AS QS.
  8. CHLOROQUINE PHOSPHATE [Concomitant]
     Dosage: DRUG REPORTED AS CHLOROQUINE DI FOSFATE.
     Route: 048
     Dates: start: 20040319
  9. HYDROCHLOROTHIAZIDE [Concomitant]
  10. AMITRIPTYLINE [Concomitant]
  11. ACETYLSALICYLIC ACID [Concomitant]
     Route: 048
     Dates: end: 20100413
  12. OMEPRAZOLE [Concomitant]
  13. METFORMIN HYDROCHLORIDE [Concomitant]

REACTIONS (1)
  - GASTROINTESTINAL HAEMORRHAGE [None]
